FAERS Safety Report 16243272 (Version 1)
Quarter: 2019Q2

REPORT INFORMATION
  Report Type: Spontaneous
  Country: GB (occurrence: GB)
  Receive Date: 20190426
  Receipt Date: 20190426
  Transmission Date: 20190711
  Serious: Yes (Hospitalization)
  Sender: FDA-Public Use
  Company Number: GB-PFIZER INC-2019175807

PATIENT
  Age: 76 Year
  Sex: Male

DRUGS (13)
  1. GLYCERYL TRINITRATE [Concomitant]
     Active Substance: NITROGLYCERIN
  2. ACETYLSALICYLIC ACID [Concomitant]
     Active Substance: ASPIRIN
  3. TILDIEM LA [Concomitant]
     Active Substance: DILTIAZEM HYDROCHLORIDE
  4. PANTOPRAZOLE [Concomitant]
     Active Substance: PANTOPRAZOLE
  5. CETIRIZINE [Concomitant]
     Active Substance: CETIRIZINE HYDROCHLORIDE
  6. LACOSAMIDE. [Suspect]
     Active Substance: LACOSAMIDE
     Indication: EPILEPSY
     Dosage: 100 MG, 1X/DAY
     Route: 048
     Dates: start: 20190114
  7. LEVETIRACETAM. [Concomitant]
     Active Substance: LEVETIRACETAM
  8. TERBUTALINE [Concomitant]
     Active Substance: TERBUTALINE
  9. CLOBAZAM. [Concomitant]
     Active Substance: CLOBAZAM
  10. PHENYTOIN. [Suspect]
     Active Substance: PHENYTOIN
     Indication: EPILEPSY
     Dosage: 600 MG, 1X/DAY
     Route: 048
  11. ISOSORBIDE MONONITRATE. [Concomitant]
     Active Substance: ISOSORBIDE MONONITRATE
  12. ATORVASTATIN [Concomitant]
     Active Substance: ATORVASTATIN
  13. SYMBICORT [Concomitant]
     Active Substance: BUDESONIDE\FORMOTEROL FUMARATE DIHYDRATE

REACTIONS (8)
  - Tremor [Unknown]
  - Dizziness [Unknown]
  - Vomiting [Unknown]
  - Toxicity to various agents [Unknown]
  - Balance disorder [Unknown]
  - Nystagmus [Recovered/Resolved]
  - Somnolence [Unknown]
  - Inappropriate schedule of product administration [Unknown]
